FAERS Safety Report 13833479 (Version 1)
Quarter: 2017Q3

REPORT INFORMATION
  Report Type: Spontaneous
  Country: US (occurrence: US)
  Receive Date: 20170803
  Receipt Date: 20170803
  Transmission Date: 20171127
  Serious: No
  Sender: FDA-Public Use
  Company Number: US-ENDO PHARMACEUTICALS INC-2017-000605

PATIENT
  Sex: Female

DRUGS (3)
  1. GENTEAL                            /00445101/ [Concomitant]
     Active Substance: HYPROMELLOSE 2910 (4000 MPA.S)
     Indication: PRODUCT USED FOR UNKNOWN INDICATION
     Dosage: UNK
  2. NYSTATIN SUSPENSION [Suspect]
     Active Substance: NYSTATIN
     Indication: FUNGAL INFECTION
     Dosage: 3 TSP, OD
     Route: 048
     Dates: start: 2015
  3. NYSTATIN SUSPENSION [Suspect]
     Active Substance: NYSTATIN
     Dosage: 1 TSP, OD
     Route: 048
     Dates: start: 2015

REACTIONS (3)
  - Product taste abnormal [Unknown]
  - Tooth discolouration [Not Recovered/Not Resolved]
  - Tooth loss [Unknown]
